FAERS Safety Report 4466851-2 (Version None)
Quarter: 2004Q3

REPORT INFORMATION
  Report Type: 
  Country: None (occurrence: None)
  Receive Date: 20040930
  Receipt Date: 20040917
  Transmission Date: 20050211
  Serious: Yes (Death)
  Sender: FDA-Public Use
  Company Number: 04H-163-0274289-00

PATIENT
  Sex: Male

DRUGS (1)
  1. MIDAZOLAM HYDROCHLORIDE INJECTION, PRESERVATIVE FREE VIAL (MIDAZOLAM H [Suspect]
     Indication: SEDATION
     Dosage: INTRAVENOUS
     Route: 042
     Dates: start: 20040901, end: 20040901

REACTIONS (1)
  - DEATH [None]
